FAERS Safety Report 17296119 (Version 1)
Quarter: 2020Q1

REPORT INFORMATION
  Report Type: Spontaneous
  Country: US (occurrence: US)
  Receive Date: 20200122
  Receipt Date: 20200122
  Transmission Date: 20200409
  Serious: No
  Sender: FDA-Public Use
  Company Number: NVSC2020US011768

PATIENT
  Age: 62 Year
  Sex: Male

DRUGS (4)
  1. MICAFUNGIN. [Suspect]
     Active Substance: MICAFUNGIN SODIUM
     Indication: PRODUCT USED FOR UNKNOWN INDICATION
     Dosage: 100 MG, QD, UPFRONT FOR 2 WEEKS
     Route: 042
  2. VORICONAZOLE. [Suspect]
     Active Substance: VORICONAZOLE
     Indication: CHRONIC LYMPHOCYTIC LEUKAEMIA
  3. VORICONAZOLE. [Suspect]
     Active Substance: VORICONAZOLE
     Indication: ASPERGILLUS INFECTION
     Dosage: 300 MG, Q12H
     Route: 048
  4. IBRUTINIB [Suspect]
     Active Substance: IBRUTINIB
     Indication: ASPERGILLUS INFECTION
     Dosage: UNK
     Route: 065

REACTIONS (4)
  - Toxicity to various agents [Unknown]
  - Abdominal discomfort [Unknown]
  - Nail disorder [Unknown]
  - Photosensitivity reaction [Unknown]
